FAERS Safety Report 4369557-3 (Version None)
Quarter: 2004Q2

REPORT INFORMATION
  Report Type: 
  Country: None (occurrence: None)
  Receive Date: 20040526
  Receipt Date: 20040223
  Transmission Date: 20050107
  Serious: Yes (Hospitalization, Other)
  Sender: FDA-Public Use
  Company Number: USA040260209

PATIENT
  Sex: Male

DRUGS (2)
  1. ZYPREXA [Suspect]
  2. DEPAKOTE [Concomitant]

REACTIONS (3)
  - COMA [None]
  - CONVULSION [None]
  - HEAD INJURY [None]
